FAERS Safety Report 14326197 (Version 1)
Quarter: 2017Q4

REPORT INFORMATION
  Report Type: Spontaneous
  Country: US (occurrence: US)
  Receive Date: 20171227
  Receipt Date: 20171227
  Transmission Date: 20180321
  Serious: No
  Sender: FDA-Public Use
  Company Number: US-009507513-1712USA006864

PATIENT
  Sex: Male

DRUGS (1)
  1. PROVENTIL [Suspect]
     Active Substance: ALBUTEROL
     Indication: BRONCHITIS
     Dosage: 90 MICROGRAM, UNK
     Route: 055

REACTIONS (5)
  - No adverse event [Unknown]
  - Product use in unapproved indication [Unknown]
  - Product container issue [Unknown]
  - Drug dose omission [Unknown]
  - Product quality issue [Unknown]
